FAERS Safety Report 23696051 (Version 1)
Quarter: 2024Q2

REPORT INFORMATION
  Report Type: Spontaneous
  Country: TR (occurrence: TR)
  Receive Date: 20240402
  Receipt Date: 20240402
  Transmission Date: 20240716
  Serious: Yes (Life-Threatening, Hospitalization, Other)
  Sender: FDA-Public Use
  Company Number: TR-862174955-ML2024-01980

PATIENT
  Age: 18 Year
  Sex: Female
  Weight: 48 kg

DRUGS (1)
  1. VERAPAMIL HYDROCHLORIDE [Suspect]
     Active Substance: VERAPAMIL HYDROCHLORIDE
     Indication: Arrhythmia
     Dosage: INGESTED 1.8 G (120 MG X 15)
     Route: 048

REACTIONS (7)
  - Hypovolaemic shock [Recovered/Resolved]
  - Toxicity to various agents [Unknown]
  - Loss of consciousness [Unknown]
  - Oedema peripheral [Unknown]
  - Metabolic acidosis [Recovering/Resolving]
  - Bradycardia [Recovered/Resolved]
  - Atrioventricular block complete [Recovered/Resolved]
